FAERS Safety Report 12736951 (Version 2)
Quarter: 2016Q3

REPORT INFORMATION
  Report Type: Report from Study
  Country: NL (occurrence: NL)
  Receive Date: 20160912
  Receipt Date: 20160930
  Transmission Date: 20161109
  Serious: Yes (Other)
  Sender: FDA-Public Use
  Company Number: NL-ABBVIE-16P-114-1592019-00

PATIENT
  Sex: Male
  Weight: 60 kg

DRUGS (1)
  1. DUODOPA [Suspect]
     Active Substance: CARBIDOPA\LEVODOPA
     Indication: PARKINSON^S DISEASE
     Dosage: MORNING DOSE 11, CONTINUOUS DOSE 5.8, EXTRA DOSE 2
     Route: 050
     Dates: start: 20160307

REACTIONS (12)
  - Fall [Unknown]
  - Tendon rupture [Recovered/Resolved]
  - Psychiatric symptom [Unknown]
  - Overdose [Recovered/Resolved]
  - Gait disturbance [Unknown]
  - Fall [Unknown]
  - Balance disorder [Unknown]
  - Akathisia [Unknown]
  - Wound [Recovered/Resolved]
  - Hyperkinesia [Unknown]
  - Freezing phenomenon [Unknown]
  - On and off phenomenon [Unknown]

NARRATIVE: CASE EVENT DATE: 2016
